FAERS Safety Report 16325809 (Version 2)
Quarter: 2019Q2

REPORT INFORMATION
  Report Type: Report from Study
  Country: US (occurrence: US)
  Receive Date: 20190517
  Receipt Date: 20190604
  Transmission Date: 20190711
  Serious: Yes (Hospitalization)
  Sender: FDA-Public Use
  Company Number: US-SA-2019SA136050

PATIENT
  Age: 58 Year
  Sex: Female

DRUGS (1)
  1. SARILUMAB [Suspect]
     Active Substance: SARILUMAB
     Indication: RHEUMATOID ARTHRITIS
     Dosage: 200 MG, QOW
     Route: 058
     Dates: start: 20190403

REACTIONS (11)
  - Sticky skin [Unknown]
  - Blood potassium decreased [Recovered/Resolved]
  - Hyperhidrosis [Unknown]
  - Dizziness [Unknown]
  - Acute sinusitis [Recovered/Resolved]
  - Blood pressure abnormal [Unknown]
  - Urinary tract infection [Recovered/Resolved]
  - Contusion [Unknown]
  - Chronic obstructive pulmonary disease [Recovered/Resolved]
  - Peripheral swelling [Recovered/Resolved]
  - Dyspnoea [Recovered/Resolved]
